FAERS Safety Report 9471643 (Version 2)
Quarter: 2013Q3

REPORT INFORMATION
  Report Type: Spontaneous
  Country: US (occurrence: US)
  Receive Date: 20130822
  Receipt Date: 20130827
  Transmission Date: 20140515
  Serious: Yes (Hospitalization)
  Sender: FDA-Public Use
  Company Number: US-BAXTER-2013BAX032532

PATIENT
  Age: 57 Year
  Sex: Male

DRUGS (1)
  1. DIANEAL LOW CALCIUM [Suspect]
     Indication: PERITONEAL DIALYSIS
     Route: 033

REACTIONS (4)
  - Ventricular tachycardia [Recovered/Resolved]
  - Heart rate increased [Recovering/Resolving]
  - Hypotension [Recovering/Resolving]
  - Blood potassium decreased [Recovering/Resolving]
